FAERS Safety Report 17858051 (Version 2)
Quarter: 2021Q3

REPORT INFORMATION
  Report Type: Spontaneous
  Country: US (occurrence: US)
  Receive Date: 20200604
  Receipt Date: 20210916
  Transmission Date: 20211014
  Serious: No
  Sender: FDA-Public Use
  Company Number: US-LUPIN PHARMACEUTICALS INC.-2019-03773

PATIENT
  Sex: Female

DRUGS (1)
  1. IRBESARTAN TABLETS USP 300 MG [Suspect]
     Active Substance: IRBESARTAN
     Indication: BLOOD PRESSURE ABNORMAL
     Dosage: UNK
     Route: 065

REACTIONS (3)
  - Product commingling [Unknown]
  - Blood pressure abnormal [Unknown]
  - Drug ineffective [Unknown]
